FAERS Safety Report 10373879 (Version 1)
Quarter: 2014Q1

REPORT INFORMATION
  Report Type: Spontaneous
  Country: US (occurrence: None)
  Receive Date: 20140306
  Receipt Date: 20140306
  Transmission Date: 20141002
  Serious: Yes (Hospitalization, Other)
  Sender: FDA-Public Use
  Company Number: 163-21880-13106025

PATIENT
  Age: 73 Year
  Sex: Female
  Weight: 70.76 kg

DRUGS (9)
  1. REVLIMID (LENALIDOMIDE) (20 MILLIGRAM, CAPSULES) [Suspect]
     Indication: PLASMA CELL MYELOMA
     Dosage: 20 MG, 21 IN 28 D, PO
     Route: 048
     Dates: start: 201309, end: 201310
  2. FEXOFENADINE (FEXOFENADINE) (UNKNOWN) [Concomitant]
  3. CALCIUM (CALCIUM) (UNKNOWN) [Concomitant]
  4. CHINESE HERB (HERBAL) (UNKNOWN) [Concomitant]
  5. FOLIC ACID (FOLIC ACID) (UNKNOWN) [Concomitant]
  6. GLUCOSAMINE (GLUCOSAMEINE) (UNKNOWN) [Concomitant]
  7. MULTIVITAMIN (MULTIVITAMINS) (UNKNOWN) [Concomitant]
  8. PRESERVISION (UNKNOWN) [Concomitant]
  9. METOPROLOL XL (METOPROLOL) (UNKNOWN) [Concomitant]

REACTIONS (5)
  - Dehydration [None]
  - Hyperhidrosis [None]
  - Deep vein thrombosis [None]
  - Nausea [None]
  - Decreased appetite [None]
